FAERS Safety Report 5667252-1 (Version None)
Quarter: 2008Q1

REPORT INFORMATION
  Report Type: 
  Country: None (occurrence: None)
  Receive Date: 20080315
  Receipt Date: 20080117
  Transmission Date: 20080703
  Serious: No
  Sender: FDA-Public Use
  Company Number: US-ABBOTT-08P-163-0433883-00

PATIENT
  Sex: Male

DRUGS (4)
  1. HUMIRA [Suspect]
     Indication: CROHN'S DISEASE
     Route: 058
     Dates: start: 20080114, end: 20080114
  2. COLOZAL [Concomitant]
     Indication: CROHN'S DISEASE
     Route: 048
  3. METOPROLOL SUCCINATE [Concomitant]
     Indication: HYPERTENSION
     Route: 048
  4. LISINOPRIL [Concomitant]
     Indication: HYPERTENSION
     Dosage: 20/25 MG
     Route: 048

REACTIONS (3)
  - DYSPNOEA EXERTIONAL [None]
  - RESPIRATORY TRACT CONGESTION [None]
  - UNEVALUABLE EVENT [None]
